FAERS Safety Report 6385914-8 (Version None)
Quarter: 2009Q4

REPORT INFORMATION
  Report Type: 
  Country: None (occurrence: None)
  Receive Date: 20091002
  Receipt Date: 20090120
  Transmission Date: 20100525
  Serious: No
  Sender: FDA-Public Use
  Company Number: US-ASTRAZENECA-2009UW02046

PATIENT
  Sex: Female

DRUGS (2)
  1. ARIMIDEX [Suspect]
     Route: 048
  2. ZOLADEX [Suspect]
     Route: 058

REACTIONS (2)
  - OCULAR VASCULAR DISORDER [None]
  - VISUAL IMPAIRMENT [None]
